FAERS Safety Report 14308837 (Version 1)
Quarter: 2017Q4

REPORT INFORMATION
  Report Type: Spontaneous
  Country: US (occurrence: US)
  Receive Date: 20171220
  Receipt Date: 20171220
  Transmission Date: 20180321
  Serious: Yes (Hospitalization)
  Sender: FDA-Public Use
  Company Number: US-SHENZHEN TECHDOW PHARMACEUTICAL CO. LTD-US-2017TEC0000067

PATIENT
  Age: 50 Year
  Sex: Female

DRUGS (1)
  1. HEPARIN SODIUM INJECTION USP, PRESERVATIVE FREE [Suspect]
     Active Substance: HEPARIN SODIUM
     Indication: RADIATION NECROSIS
     Dosage: UNK
     Route: 058

REACTIONS (4)
  - Cerebral venous thrombosis [Recovered/Resolved]
  - Intracranial pressure increased [Recovered/Resolved]
  - Heparin-induced thrombocytopenia [Recovered/Resolved]
  - Cerebral haemorrhage [Recovered/Resolved]
